FAERS Safety Report 13527562 (Version 2)
Quarter: 2017Q2

REPORT INFORMATION
  Report Type: Spontaneous
  Country: JP (occurrence: JP)
  Receive Date: 20170509
  Receipt Date: 20170526
  Transmission Date: 20170830
  Serious: Yes (Hospitalization)
  Sender: FDA-Public Use
  Company Number: JP-GLAXOSMITHKLINE-JP2017JPN061364

PATIENT
  Age: 27 Year
  Sex: Male

DRUGS (4)
  1. DEPAS [Concomitant]
     Active Substance: ETIZOLAM
     Dosage: UNK
  2. ABILIFY [Concomitant]
     Active Substance: ARIPIPRAZOLE
     Dosage: UNK
  3. LAMICTAL [Suspect]
     Active Substance: LAMOTRIGINE
     Indication: BIPOLAR DISORDER
     Dosage: 25 MG, QD
     Route: 048
     Dates: start: 20170324, end: 201704
  4. RIZE (JAPAN) [Concomitant]

REACTIONS (5)
  - Oropharyngeal discomfort [Recovering/Resolving]
  - Oropharyngeal pain [Recovering/Resolving]
  - Rash morbilliform [Recovering/Resolving]
  - Eczema [Recovering/Resolving]
  - Pyrexia [Recovering/Resolving]

NARRATIVE: CASE EVENT DATE: 2017
